FAERS Safety Report 24915595 (Version 1)
Quarter: 2025Q1

REPORT INFORMATION
  Report Type: Spontaneous
  Country: US (occurrence: US)
  Receive Date: 20250203
  Receipt Date: 20250203
  Transmission Date: 20250408
  Serious: Yes (Hospitalization)
  Sender: CHEPLAPHARM
  Company Number: US-CHEPLA-2025001305

PATIENT
  Age: 70 Year

DRUGS (12)
  1. GANCICLOVIR [Suspect]
     Active Substance: GANCICLOVIR
     Indication: Cytomegalovirus colitis
     Dosage: 2.5 MG/KG ONCE DAILY?DAILY DOSE: 2.5 MILLIGRAM/KG
     Route: 042
  2. VALGANCICLOVIR [Suspect]
     Active Substance: VALGANCICLOVIR
     Indication: Antiviral prophylaxis
     Dosage: 450 MG DAILY?DAILY DOSE: 450 MILLIGRAM
     Route: 048
  3. VALGANCICLOVIR [Suspect]
     Active Substance: VALGANCICLOVIR
     Indication: Antiviral prophylaxis
     Dosage: 450 MG TWICE DAILY?DAILY DOSE: 900 MILLIGRAM
     Route: 048
  4. SULFAMETHOXAZOLE\TRIMETHOPRIM [Suspect]
     Active Substance: SULFAMETHOXAZOLE\TRIMETHOPRIM
     Indication: Infection prophylaxis
     Dosage: 80/400 MG DAILY
  5. NYSTATIN [Suspect]
     Active Substance: NYSTATIN
     Indication: Infection prophylaxis
  6. THYMOGLOBULIN [Concomitant]
     Active Substance: LAPINE T-LYMPHOCYTE IMMUNE GLOBULIN
     Route: 042
  7. TACROLIMUS [Concomitant]
     Active Substance: TACROLIMUS
     Dosage: 0.1 MG/KG, TWICE DAILY?DAILY DOSE: 0.2 MILLIGRAM/KG
     Route: 048
  8. MYCOPHENOLATE MOFETIL [Concomitant]
     Active Substance: MYCOPHENOLATE MOFETIL
     Dosage: 750 MG TWICE DAILY?DAILY DOSE: 1500 MILLIGRAM
     Route: 048
  9. PREDNISONE [Concomitant]
     Active Substance: PREDNISONE
     Dosage: 5 MG DAILY?DAILY DOSE: 5 MILLIGRAM
     Route: 048
  10. AUGMENTIN [Concomitant]
     Active Substance: AMOXICILLIN\CLAVULANATE POTASSIUM
     Indication: Pneumonia aspiration
     Dosage: 1.2 GRAM IV TWICE DAILY?DAILY DOSE: 2.4 GRAM
     Route: 042
  11. AUGMENTIN [Concomitant]
     Active Substance: AMOXICILLIN\CLAVULANATE POTASSIUM
     Indication: Pneumonia aspiration
     Dosage: CONVERTED TO ORAL 625 THREE TIME DAILY?DAILY DOSE: 1875 MILLIGRAM
     Route: 048
  12. Metronidazone [Concomitant]
     Indication: Pneumonia aspiration
     Dosage: 500 MG IV THREE TIMES DAILY?DAILY DOSE: 1500 MILLIGRAM
     Route: 042

REACTIONS (3)
  - Urinary tract infection [Recovered/Resolved]
  - Chronic gastritis [Unknown]
  - Drug ineffective [Unknown]
